FAERS Safety Report 21592244 (Version 8)
Quarter: 2024Q3

REPORT INFORMATION
  Report Type: Report from Study
  Country: US (occurrence: US)
  Receive Date: 20221114
  Receipt Date: 20240924
  Transmission Date: 20241017
  Serious: Yes (Disabling, Other)
  Sender: NOVARTIS
  Company Number: US-002147023-NVSC2022US252650

PATIENT
  Sex: Male

DRUGS (4)
  1. ENTRESTO [Suspect]
     Active Substance: SACUBITRIL\VALSARTAN
     Indication: Product used for unknown indication
     Dosage: UNK UNK, BID
     Route: 048
  2. ENTRESTO [Suspect]
     Active Substance: SACUBITRIL\VALSARTAN
     Dosage: 0.5 DOSAGE FORM
     Route: 048
  3. ENTRESTO [Suspect]
     Active Substance: SACUBITRIL\VALSARTAN
     Dosage: 2 DOSAGE FORM, BID (LOWER DOSE)
     Route: 048
  4. ENTRESTO [Suspect]
     Active Substance: SACUBITRIL\VALSARTAN
     Dosage: UNK
     Route: 048

REACTIONS (7)
  - Hemiplegia [Unknown]
  - Cerebrovascular accident [Unknown]
  - Diabetes mellitus [Unknown]
  - Hypoacusis [Unknown]
  - Blood pressure increased [Recovered/Resolved]
  - Cough [Unknown]
  - Wrong technique in product usage process [Unknown]
